FAERS Safety Report 9006380 (Version 1)
Quarter: 2013Q1

REPORT INFORMATION
  Report Type: Spontaneous
  Country: US (occurrence: US)
  Receive Date: 20130110
  Receipt Date: 20130110
  Transmission Date: 20140127
  Serious: Yes (Other)
  Sender: FDA-Public Use
  Company Number: US-009507513-0907USA03805

PATIENT
  Age: 7 Year
  Sex: Female
  Weight: 34.19 kg

DRUGS (2)
  1. SINGULAIR [Suspect]
     Indication: MULTIPLE ALLERGIES
     Dosage: 5 MG, QD
     Route: 048
     Dates: start: 20081028, end: 20081119
  2. SINGULAIR [Suspect]
     Indication: SINUSITIS

REACTIONS (2)
  - Abnormal behaviour [Recovering/Resolving]
  - Emotional disorder [Recovering/Resolving]
